FAERS Safety Report 9660652 (Version 2)
Quarter: 2013Q4

REPORT INFORMATION
  Report Type: Spontaneous
  Country: US (occurrence: US)
  Receive Date: 20131031
  Receipt Date: 20131120
  Transmission Date: 20140711
  Serious: No
  Sender: FDA-Public Use
  Company Number: US-TEVA-440476USA

PATIENT
  Age: 58 Year
  Sex: Female
  Weight: 56.75 kg

DRUGS (2)
  1. NUVIGIL [Suspect]
     Indication: SLEEP APNOEA SYNDROME
     Dosage: 50 MILLIGRAM DAILY;
     Route: 048
     Dates: start: 201305
  2. TRIAMTERENE [Concomitant]
     Indication: MENIERE^S DISEASE

REACTIONS (4)
  - Oropharyngeal pain [Recovered/Resolved]
  - Vocal cord disorder [Recovered/Resolved]
  - Dysphonia [Recovered/Resolved]
  - Throat tightness [Recovered/Resolved]
